FAERS Safety Report 4399584-1 (Version None)
Quarter: 2004Q3

REPORT INFORMATION
  Report Type: 
  Country: None (occurrence: None)
  Receive Date: 20040716
  Receipt Date: 20040611
  Transmission Date: 20050211
  Serious: Yes (Life-Threatening)
  Sender: FDA-Public Use
  Company Number: US-MERCK-0406USA01389

PATIENT
  Age: 86 Year
  Sex: Male
  Weight: 75 kg

DRUGS (5)
  1. TYLENOL [Concomitant]
     Route: 065
  2. PERCOCET [Concomitant]
     Route: 065
  3. VIOXX [Suspect]
     Indication: HERPES ZOSTER
     Route: 048
     Dates: start: 20040226, end: 20040227
  4. VIOXX [Suspect]
     Route: 048
     Dates: start: 20040301
  5. COUMADIN [Concomitant]
     Route: 065

REACTIONS (1)
  - DEPRESSED LEVEL OF CONSCIOUSNESS [None]
